FAERS Safety Report 25749962 (Version 3)
Quarter: 2025Q4

REPORT INFORMATION
  Report Type: Spontaneous
  Country: EU (occurrence: EU)
  Receive Date: 20250902
  Receipt Date: 20251015
  Transmission Date: 20260118
  Serious: Yes (Death)
  Sender: MERCK SHARP & DOHME LLC
  Company Number: None

PATIENT
  Age: 60 Year
  Sex: Female
  Weight: 53 kg

DRUGS (11)
  1. KEYTRUDA [Suspect]
     Active Substance: PEMBROLIZUMAB
     Indication: Lung adenocarcinoma stage IV
     Dosage: 200MG
     Route: 042
     Dates: start: 20250725, end: 20250725
  2. FOLIC ACID [Concomitant]
     Active Substance: FOLIC ACID
     Dosage: 5MG DIE
     Route: 048
  3. LEVOTHYROXINE [Concomitant]
     Active Substance: LEVOTHYROXINE
     Dosage: LEVOTHYROXINE 500 MCG 1 TABLET SAT-SUN, LEVOTHYROXINE 75 MCG 1 TABLET MON-FRI
     Route: 048
  4. SERTRALINE [Concomitant]
     Active Substance: SERTRALINE HYDROCHLORIDE
     Dosage: 50MG DIE
     Route: 048
  5. DEXAMETHASONE [Concomitant]
     Active Substance: DEXAMETHASONE
     Dosage: 6MG DIE
     Route: 048
  6. ROSUVASTATIN [Concomitant]
     Active Substance: ROSUVASTATIN
     Dosage: 5MG DIE
     Route: 048
  7. PEMETREXED [Suspect]
     Active Substance: PEMETREXED
     Indication: Lung adenocarcinoma stage IV
     Dosage: 740MG
     Route: 042
     Dates: start: 20250725, end: 20250725
  8. PANTOPRAZOLE SODIUM [Concomitant]
     Active Substance: PANTOPRAZOLE SODIUM
     Dosage: 40MG DAILY
     Route: 048
  9. CARBOPLATIN [Suspect]
     Active Substance: CARBOPLATIN
     Indication: Lung adenocarcinoma stage IV
     Dosage: 430 MG
     Route: 065
     Dates: start: 20250725, end: 20250725
  10. INSULIN NOS [Concomitant]
     Active Substance: INSULIN NOS
     Dosage: ACCORDING TO THE BASAL-BOLUS SCHEME
  11. BISOPROLOL FUMARATE [Concomitant]
     Active Substance: BISOPROLOL FUMARATE
     Dosage: 2.5MG DIE
     Route: 048

REACTIONS (4)
  - Pancytopenia [Fatal]
  - Pneumonitis [Fatal]
  - Febrile neutropenia [Fatal]
  - Intestinal perforation [Fatal]

NARRATIVE: CASE EVENT DATE: 20250801
